FAERS Safety Report 9562249 (Version 1)
Quarter: 2013Q3

REPORT INFORMATION
  Report Type: Spontaneous
  Country: US (occurrence: US)
  Receive Date: 20130927
  Receipt Date: 20130927
  Transmission Date: 20140515
  Serious: Yes (Hospitalization)
  Sender: FDA-Public Use
  Company Number: US-ASTRAZENECA-2013SE70860

PATIENT
  Sex: Female

DRUGS (2)
  1. ENTOCORT EC [Suspect]
     Indication: COLITIS
     Route: 048
  2. ENTOCORT EC [Suspect]
     Indication: COLITIS
     Route: 048

REACTIONS (4)
  - Malaise [Unknown]
  - Weight decreased [Unknown]
  - Off label use [Unknown]
  - Intentional drug misuse [Unknown]
